FAERS Safety Report 7543774-3 (Version None)
Quarter: 2011Q2

REPORT INFORMATION
  Report Type: 
  Country: None (occurrence: None)
  Receive Date: 20110613
  Receipt Date: 20040624
  Transmission Date: 20111010
  Serious: Yes (Death)
  Sender: FDA-Public Use
  Company Number: PHHO2004JP08617

PATIENT
  Sex: Male

DRUGS (4)
  1. NEO-MINOPHAGEN C [Concomitant]
     Indication: HEPATITIS C
  2. DIOVAN [Suspect]
     Indication: HYPERTENSION
     Dosage: 80 MG, QD
     Route: 048
     Dates: start: 20030304
  3. URSO 250 [Concomitant]
     Indication: HEPATITIS C
  4. HUMACART 3/7 [Concomitant]
     Indication: DIABETES MELLITUS

REACTIONS (2)
  - CARDIO-RESPIRATORY ARREST [None]
  - MYOCARDIAL INFARCTION [None]
